FAERS Safety Report 17557834 (Version 2)
Quarter: 2020Q1

REPORT INFORMATION
  Report Type: Report from Study
  Country: None (occurrence: US)
  Receive Date: 20200318
  Receipt Date: 20200324
  Transmission Date: 20200409
  Serious: Yes (Other)
  Sender: FDA-Public Use
  Company Number: US-ABBVIE-18K-163-3103202-00

PATIENT
  Age: 86 Year
  Sex: Female

DRUGS (25)
  1. XOPENEX [Concomitant]
     Active Substance: LEVALBUTEROL HYDROCHLORIDE
     Indication: PRODUCT USED FOR UNKNOWN INDICATION
  2. TRIAMCINOLONE ACETONIDE. [Concomitant]
     Active Substance: TRIAMCINOLONE ACETONIDE
     Indication: PRODUCT USED FOR UNKNOWN INDICATION
  3. VALTREX [Concomitant]
     Active Substance: VALACYCLOVIR HYDROCHLORIDE
     Indication: PRODUCT USED FOR UNKNOWN INDICATION
  4. PRESERVISION AREDS [Concomitant]
     Active Substance: MINERALS\VITAMINS
     Indication: PRODUCT USED FOR UNKNOWN INDICATION
  5. IMBRUVICA [Suspect]
     Active Substance: IBRUTINIB
     Dosage: 140 MG, QD
     Route: 048
     Dates: start: 20180725
  6. IMBRUVICA [Suspect]
     Active Substance: IBRUTINIB
     Indication: CHRONIC LYMPHOCYTIC LEUKAEMIA
     Dosage: 140 MG, QD
     Route: 048
     Dates: start: 20180430
  7. IMBRUVICA [Suspect]
     Active Substance: IBRUTINIB
     Dosage: 140 MG, QD
     Route: 048
     Dates: start: 20180501, end: 20180618
  8. IMBRUVICA [Suspect]
     Active Substance: IBRUTINIB
     Dosage: 140 MG, QD
     Route: 048
     Dates: start: 20180503, end: 20180724
  9. ALPAIN                             /00044201/ [Concomitant]
     Indication: PRODUCT USED FOR UNKNOWN INDICATION
  10. PROAIR HFA [Concomitant]
     Active Substance: ALBUTEROL SULFATE
     Indication: PRODUCT USED FOR UNKNOWN INDICATION
  11. IMBRUVICA [Suspect]
     Active Substance: IBRUTINIB
     Indication: CHRONIC LYMPHOCYTIC LEUKAEMIA
     Dosage: 140 MG, QD
     Route: 048
     Dates: start: 20180619
  12. CRANBERRY                          /01512301/ [Concomitant]
     Active Substance: CRANBERRY
     Indication: PRODUCT USED FOR UNKNOWN INDICATION
  13. MAGNESIUM [Concomitant]
     Active Substance: MAGNESIUM
     Indication: PRODUCT USED FOR UNKNOWN INDICATION
  14. MYRBETRIQ [Concomitant]
     Active Substance: MIRABEGRON
     Indication: PRODUCT USED FOR UNKNOWN INDICATION
     Dosage: UNK
  15. IMBRUVICA [Suspect]
     Active Substance: IBRUTINIB
     Dosage: 140 MG, QD
     Route: 048
     Dates: start: 20180501, end: 20180724
  16. IMBRUVICA [Suspect]
     Active Substance: IBRUTINIB
     Route: 048
     Dates: start: 20180501
  17. CYANOCOBALAMIN. [Concomitant]
     Active Substance: CYANOCOBALAMIN
     Indication: PRODUCT USED FOR UNKNOWN INDICATION
  18. IMBRUVICA [Suspect]
     Active Substance: IBRUTINIB
     Dosage: 140 MG, QD
     Route: 048
     Dates: start: 20180503, end: 20180724
  19. IMBRUVICA [Suspect]
     Active Substance: IBRUTINIB
     Route: 048
  20. IMBRUVICA [Suspect]
     Active Substance: IBRUTINIB
     Dosage: 140 MG, QD
     Route: 048
     Dates: start: 20180725
  21. COENZYME Q10 [Concomitant]
     Active Substance: UBIDECARENONE
     Indication: PRODUCT USED FOR UNKNOWN INDICATION
  22. IBUPROFEN. [Concomitant]
     Active Substance: IBUPROFEN
     Indication: PRODUCT USED FOR UNKNOWN INDICATION
  23. BEETROOT [Concomitant]
     Indication: PRODUCT USED FOR UNKNOWN INDICATION
  24. ALPHA LIPOIC ACID [Concomitant]
     Active Substance: .ALPHA.-LIPOIC ACID
     Indication: PRODUCT USED FOR UNKNOWN INDICATION
  25. GABAPENTIN. [Concomitant]
     Active Substance: GABAPENTIN
     Indication: PRODUCT USED FOR UNKNOWN INDICATION

REACTIONS (43)
  - Flatulence [Unknown]
  - Gingival pain [Not Recovered/Not Resolved]
  - Stomatitis [Recovering/Resolving]
  - Cataract [Unknown]
  - Gastric disorder [Unknown]
  - Rash macular [Unknown]
  - Dry skin [Unknown]
  - Dysphonia [Unknown]
  - Lip pain [Unknown]
  - Faeces hard [Recovering/Resolving]
  - Constipation [Recovered/Resolved]
  - Dyspepsia [Not Recovered/Not Resolved]
  - Diarrhoea [Recovering/Resolving]
  - Urinary tract infection [Unknown]
  - Gastrointestinal disorder [Unknown]
  - Abnormal faeces [Recovering/Resolving]
  - White blood cell count increased [Unknown]
  - Increased tendency to bruise [Unknown]
  - Rash papular [Recovered/Resolved]
  - Dizziness [Unknown]
  - Contusion [Unknown]
  - Bowel movement irregularity [Unknown]
  - Rash pruritic [Recovering/Resolving]
  - Pain [Unknown]
  - Rash pruritic [Unknown]
  - Chills [Not Recovered/Not Resolved]
  - Platelet count decreased [Unknown]
  - Gingival bleeding [Unknown]
  - Dental care [Unknown]
  - Dry mouth [Not Recovered/Not Resolved]
  - Oral pain [Not Recovered/Not Resolved]
  - Infrequent bowel movements [Unknown]
  - Burning sensation [Unknown]
  - Incorrect dose administered [Unknown]
  - Asthenia [Unknown]
  - Red blood cell count decreased [Unknown]
  - Faeces soft [Recovering/Resolving]
  - Sciatica [Unknown]
  - Muscle spasms [Not Recovered/Not Resolved]
  - Product dose omission [Unknown]
  - Neuropathy peripheral [Not Recovered/Not Resolved]
  - Nausea [Unknown]
  - Abdominal pain upper [Unknown]

NARRATIVE: CASE EVENT DATE: 2018
